FAERS Safety Report 16798359 (Version 1)
Quarter: 2019Q3

REPORT INFORMATION
  Report Type: Report from Study
  Country: None (occurrence: US)
  Receive Date: 20190912
  Receipt Date: 20190912
  Transmission Date: 20191005
  Serious: Yes (Other)
  Sender: FDA-Public Use
  Company Number: US-ABBVIE-19K-163-2917377-00

PATIENT
  Age: 63 Year
  Sex: Female

DRUGS (1)
  1. SYNTHROID [Suspect]
     Active Substance: LEVOTHYROXINE SODIUM
     Indication: PRODUCT USED FOR UNKNOWN INDICATION
     Route: 048

REACTIONS (9)
  - Hernia [Unknown]
  - Dizziness [Unknown]
  - Cataract [Unknown]
  - Hernia [Unknown]
  - Cataract [Unknown]
  - Medical device removal [Unknown]
  - Balance disorder [Unknown]
  - Gingival operation [Unknown]
  - Cardiac operation [Unknown]

NARRATIVE: CASE EVENT DATE: 200908
